FAERS Safety Report 6889561-0 (Version None)
Quarter: 2010Q3

REPORT INFORMATION
  Report Type: 
  Country: None (occurrence: None)
  Receive Date: 20100730
  Receipt Date: 20080505
  Transmission Date: 20110219
  Serious: No
  Sender: FDA-Public Use
  Company Number: US-PFIZER INC-2008025263

PATIENT
  Sex: Female

DRUGS (1)
  1. LIPITOR [Suspect]
     Dates: start: 20071201, end: 20080101

REACTIONS (4)
  - DRUG HYPERSENSITIVITY [None]
  - HEADACHE [None]
  - RASH [None]
  - RASH PRURITIC [None]
